FAERS Safety Report 17944701 (Version 1)
Quarter: 2020Q2

REPORT INFORMATION
  Report Type: Spontaneous
  Country: US (occurrence: US)
  Receive Date: 20200626
  Receipt Date: 20200626
  Transmission Date: 20200714
  Serious: Yes (Death, Life-Threatening, Other)
  Sender: FDA-Public Use
  Company Number: US-AMGEN-USASP2020098607

PATIENT

DRUGS (4)
  1. NEUPOGEN [Suspect]
     Active Substance: FILGRASTIM
     Indication: NEUTROPHIL COUNT DECREASED
     Dosage: 5 GRAM PER KILOGRAM, AFTER CHEMO (APPROX. 24 HOURS AFTER THE COMPLETION OF INFUSION)
     Route: 058
  2. CYCLOPHOSPHAMIDE. [Suspect]
     Active Substance: CYCLOPHOSPHAMIDE
     Indication: LYMPHOMA
     Dosage: 200 MILLIGRAM/SQ. METER, QD (FOR 4 DAYS, 96 HOURS)
     Route: 042
  3. ETOPOSIDE. [Suspect]
     Active Substance: ETOPOSIDE
     Indication: LYMPHOMA
     Dosage: 60 MILLIGRAM/SQ. METER, QD  (FOR 4 DAY,96 HOURS)
     Route: 042
  4. DOXORUBICIN [Suspect]
     Active Substance: DOXORUBICIN
     Indication: LYMPHOMA
     Dosage: 12.5 MILLIGRAM/SQ. METER, QD (FOR 4 DAYS, 96 HOURS)
     Route: 042

REACTIONS (32)
  - Death [Fatal]
  - Diarrhoea [Unknown]
  - Nausea [Unknown]
  - Myocardial infarction [Fatal]
  - Chronic respiratory disease [Fatal]
  - Stomatitis [Unknown]
  - Lung disorder [Unknown]
  - Peripheral sensory neuropathy [Unknown]
  - Weight increased [Unknown]
  - Genitourinary symptom [Unknown]
  - Neuropsychiatric symptoms [Unknown]
  - Anaemia [Unknown]
  - Motor neurone disease [Unknown]
  - Weight decreased [Unknown]
  - Metabolic disorder [Unknown]
  - Liver disorder [Unknown]
  - Cardiac disorder [Unknown]
  - Skin disorder [Unknown]
  - Neutropenia [Unknown]
  - Thrombocytopenia [Unknown]
  - Mycobacterium kansasii infection [Fatal]
  - Haemorrhage [Unknown]
  - Leukopenia [Unknown]
  - Pyrexia [Unknown]
  - Phlebitis [Unknown]
  - Nervous system disorder [Unknown]
  - Pulmonary embolism [Fatal]
  - Vomiting [Unknown]
  - Sepsis [Fatal]
  - Multiple organ dysfunction syndrome [Fatal]
  - Infection [Fatal]
  - Fatigue [Unknown]
